FAERS Safety Report 12126885 (Version 2)
Quarter: 2016Q1

REPORT INFORMATION
  Report Type: Spontaneous
  Country: JP (occurrence: JP)
  Receive Date: 20160229
  Receipt Date: 20160331
  Transmission Date: 20160526
  Serious: Yes (Other)
  Sender: FDA-Public Use
  Company Number: JP-SA-2016SA037324

PATIENT
  Age: 83 Year
  Sex: Male
  Weight: 60.7 kg

DRUGS (1)
  1. PLAVIX [Suspect]
     Active Substance: CLOPIDOGREL BISULFATE
     Indication: CEREBRAL INFARCTION
     Route: 048
     Dates: start: 201601

REACTIONS (2)
  - Urinary retention [Recovered/Resolved]
  - Rash generalised [Unknown]

NARRATIVE: CASE EVENT DATE: 201602
